FAERS Safety Report 14198765 (Version 3)
Quarter: 2017Q4

REPORT INFORMATION
  Report Type: Spontaneous
  Country: US (occurrence: US)
  Receive Date: 20171117
  Receipt Date: 20171128
  Transmission Date: 20180321
  Serious: Yes (Other)
  Sender: FDA-Public Use
  Company Number: US-PFIZER INC-2017490321

PATIENT
  Age: 53 Year
  Sex: Male
  Weight: 108.8 kg

DRUGS (10)
  1. LYRICA [Suspect]
     Active Substance: PREGABALIN
     Dosage: 150 MG, UNK (TRIED TAKING HALF THE MEDICATION)
  2. ELAVIL [Concomitant]
     Active Substance: AMITRIPTYLINE HYDROCHLORIDE
     Indication: SLEEP DISORDER
     Dosage: 300 MG, DAILY AT BEDTIME
  3. LYRICA [Suspect]
     Active Substance: PREGABALIN
     Dosage: 300 MG DAILY AT LUNCH TIME
  4. LYRICA [Suspect]
     Active Substance: PREGABALIN
     Dosage: 150 MG, UNK
     Dates: end: 20171029
  5. CLONIDINE. [Concomitant]
     Active Substance: CLONIDINE
     Indication: RELAXATION THERAPY
     Dosage: 0.1 MG, 3X/DAY
  6. LYRICA [Suspect]
     Active Substance: PREGABALIN
     Dosage: 150 MG, UNK
  7. LYRICA [Suspect]
     Active Substance: PREGABALIN
     Indication: NEURALGIA
     Dosage: 75 MG, UNK
  8. NEXIUM [Concomitant]
     Active Substance: ESOMEPRAZOLE MAGNESIUM
     Indication: GASTROOESOPHAGEAL REFLUX DISEASE
     Dosage: 40 MG, DAILY
  9. METHADONE [Concomitant]
     Active Substance: METHADONE HYDROCHLORIDE
     Dosage: 160 MG, DAILY
  10. METHADONE [Concomitant]
     Active Substance: METHADONE HYDROCHLORIDE
     Dosage: 25 MG, DAILY

REACTIONS (26)
  - Malaise [Unknown]
  - Feeling abnormal [Unknown]
  - Influenza [Recovering/Resolving]
  - Intentional product use issue [Unknown]
  - Agitation [Unknown]
  - Condition aggravated [Recovering/Resolving]
  - Disturbance in attention [Unknown]
  - Psychiatric symptom [Unknown]
  - Intellectual disability [Unknown]
  - Withdrawal syndrome [Unknown]
  - Drug ineffective [Unknown]
  - Sinusitis [Recovering/Resolving]
  - Formication [Unknown]
  - Abnormal behaviour [Unknown]
  - Judgement impaired [Unknown]
  - Movement disorder [Unknown]
  - Stress [Recovering/Resolving]
  - Memory impairment [Unknown]
  - Diarrhoea [Unknown]
  - Nausea [Unknown]
  - Vomiting [Unknown]
  - Suicidal ideation [Recovering/Resolving]
  - Nervousness [Unknown]
  - Eating disorder [Not Recovered/Not Resolved]
  - Weight decreased [Not Recovered/Not Resolved]
  - Tearfulness [Unknown]

NARRATIVE: CASE EVENT DATE: 201709
